FAERS Safety Report 18367360 (Version 1)
Quarter: 2020Q4

REPORT INFORMATION
  Report Type: Spontaneous
  Country: GB (occurrence: GB)
  Receive Date: 20201009
  Receipt Date: 20201009
  Transmission Date: 20210114
  Serious: Yes (Other)
  Sender: FDA-Public Use
  Company Number: NVSC2020GB268352

PATIENT
  Sex: Male

DRUGS (1)
  1. IOPIDINE [Suspect]
     Active Substance: APRACLONIDINE HYDROCHLORIDE
     Indication: GLAUCOMA
     Dosage: UNK
     Route: 047

REACTIONS (3)
  - Intraocular pressure test abnormal [Unknown]
  - Product availability issue [Unknown]
  - Drug ineffective [Unknown]
